FAERS Safety Report 4916971-0 (Version None)
Quarter: 2006Q1

REPORT INFORMATION
  Report Type: 
  Country: None (occurrence: None)
  Receive Date: 20060221
  Receipt Date: 20060210
  Transmission Date: 20060701
  Serious: Yes (Hospitalization, Other)
  Sender: FDA-Public Use
  Company Number: US-JNJFOC-20060103984

PATIENT
  Sex: Male
  Weight: 115.21 kg

DRUGS (2)
  1. REMICADE [Suspect]
     Dosage: 5MG/KG
     Route: 042
  2. REMICADE [Suspect]
     Indication: CROHN'S DISEASE
     Dosage: THE PATIENT RECEIVED A TOTAL OF 2 DOSES
     Route: 042

REACTIONS (5)
  - ARTHRALGIA [None]
  - CHEST PAIN [None]
  - COLECTOMY [None]
  - DYSPNOEA [None]
  - PARAESTHESIA [None]
